FAERS Safety Report 8990564 (Version 1)
Quarter: 2012Q4

REPORT INFORMATION
  Report Type: Report from Study
  Country: GB (occurrence: GB)
  Receive Date: 20121228
  Receipt Date: 20121228
  Transmission Date: 20130627
  Serious: Yes (Other)
  Sender: FDA-Public Use
  Company Number: GB-JNJFOC-20121212261

PATIENT
  Sex: Male

DRUGS (1)
  1. SIMPONI [Suspect]
     Indication: PRODUCT USED FOR UNKNOWN INDICATION
     Route: 058
     Dates: start: 20121116

REACTIONS (1)
  - Abscess [Recovering/Resolving]
